FAERS Safety Report 21742840 (Version 2)
Quarter: 2023Q1

REPORT INFORMATION
  Report Type: Report from Study
  Country: US (occurrence: US)
  Receive Date: 20221217
  Receipt Date: 20230316
  Transmission Date: 20230418
  Serious: No
  Sender: FDA-Public Use
  Company Number: US-ABBVIE-4201519

PATIENT
  Age: 65 Year
  Sex: Female
  Weight: 54 kg

DRUGS (1)
  1. HUMIRA [Suspect]
     Active Substance: ADALIMUMAB
     Indication: Psoriasis
     Route: 058

REACTIONS (4)
  - Upper limb fracture [Recovering/Resolving]
  - Skin exfoliation [Unknown]
  - Therapeutic product effect decreased [Unknown]
  - Pain of skin [Unknown]

NARRATIVE: CASE EVENT DATE: 20221016
